FAERS Safety Report 12420653 (Version 4)
Quarter: 2020Q1

REPORT INFORMATION
  Report Type: Spontaneous
  Country: US (occurrence: US)
  Receive Date: 20160531
  Receipt Date: 20200206
  Transmission Date: 20200409
  Serious: Yes (Death, Hospitalization)
  Sender: FDA-Public Use
  Company Number: US-JNJFOC-20160521488

PATIENT
  Age: 67 Year
  Sex: Male

DRUGS (3)
  1. EFFIENT [Suspect]
     Active Substance: PRASUGREL HYDROCHLORIDE
     Indication: PRODUCT USED FOR UNKNOWN INDICATION
     Route: 065
  2. XARELTO [Suspect]
     Active Substance: RIVAROXABAN
     Route: 048
     Dates: start: 201501, end: 20150116
  3. XARELTO [Suspect]
     Active Substance: RIVAROXABAN
     Indication: THROMBOSIS PROPHYLAXIS
     Route: 048
     Dates: start: 20141026, end: 20150107

REACTIONS (6)
  - Transient ischaemic attack [Recovering/Resolving]
  - Cardiac failure congestive [Unknown]
  - Epistaxis [Recovered/Resolved]
  - Ear haemorrhage [Recovering/Resolving]
  - Coagulopathy [Unknown]
  - Haemoptysis [Unknown]

NARRATIVE: CASE EVENT DATE: 20141124
